FAERS Safety Report 20766765 (Version 1)
Quarter: 2022Q2

REPORT INFORMATION
  Report Type: Spontaneous
  Country: US (occurrence: US)
  Receive Date: 20220429
  Receipt Date: 20220429
  Transmission Date: 20220721
  Serious: Yes (Hospitalization, Other)
  Sender: FDA-Public Use
  Company Number: US-SA-SAC20220428000761

PATIENT
  Sex: Female

DRUGS (4)
  1. DUPIXENT [Suspect]
     Active Substance: DUPILUMAB
     Indication: Asthma
     Dosage: 300 MG, QOW
     Route: 058
     Dates: start: 20210903
  2. ENTRESTO [Concomitant]
     Active Substance: SACUBITRIL\VALSARTAN
     Dosage: 97-103 MG
  3. METOPROLOL [Concomitant]
     Active Substance: METOPROLOL
  4. PREGABALIN [Concomitant]
     Active Substance: PREGABALIN
     Dosage: 75 MG

REACTIONS (2)
  - Intestinal obstruction [Unknown]
  - Product use issue [Unknown]
